FAERS Safety Report 25599628 (Version 5)
Quarter: 2025Q3

REPORT INFORMATION
  Report Type: Spontaneous
  Country: JP (occurrence: JP)
  Receive Date: 20250724
  Receipt Date: 20250805
  Transmission Date: 20251021
  Serious: Yes (Death, Life-Threatening, Hospitalization, Other)
  Sender: SANOFI AVENTIS
  Company Number: JP-MLMSERVICE-20250707-PI568399-00217-1

PATIENT
  Age: 70 Year
  Sex: Male

DRUGS (2)
  1. TAXOTERE [Suspect]
     Active Substance: DOCETAXEL
     Indication: Hormone-refractory prostate cancer
     Dosage: 75 MG/M2 (125 MG/BODY), Q3W
  2. METFORMIN HYDROCHLORIDE [Suspect]
     Active Substance: METFORMIN HYDROCHLORIDE
     Indication: Diabetes mellitus

REACTIONS (14)
  - Lactic acidosis [Fatal]
  - Decreased appetite [Fatal]
  - Dehydration [Fatal]
  - Pyrexia [Fatal]
  - Fatigue [Fatal]
  - Metabolic acidosis [Fatal]
  - Hyperkalaemia [Unknown]
  - Pulseless electrical activity [Unknown]
  - Septic shock [Unknown]
  - Ventricular fibrillation [Unknown]
  - Drug clearance decreased [Unknown]
  - Leukopenia [Recovering/Resolving]
  - Febrile neutropenia [Recovering/Resolving]
  - Acute kidney injury [Recovering/Resolving]
